FAERS Safety Report 8225911-0 (Version None)
Quarter: 2012Q1

REPORT INFORMATION
  Report Type: 
  Country: None (occurrence: None)
  Receive Date: 20120321
  Receipt Date: 20120315
  Transmission Date: 20120608
  Serious: Yes (Other)
  Sender: FDA-Public Use
  Company Number: US-ROCHE-1022332

PATIENT
  Sex: Female
  Weight: 54.48 kg

DRUGS (1)
  1. ACCUTANE [Suspect]
     Indication: ACNE
     Dates: start: 19810101, end: 19830101

REACTIONS (4)
  - COLITIS ULCERATIVE [None]
  - INTESTINAL OBSTRUCTION [None]
  - DEEP VEIN THROMBOSIS [None]
  - COLON CANCER [None]
